FAERS Safety Report 16968048 (Version 5)
Quarter: 2020Q2

REPORT INFORMATION
  Report Type: Report from Study
  Country: FR (occurrence: FR)
  Receive Date: 20191028
  Receipt Date: 20200424
  Transmission Date: 20200713
  Serious: Yes (Death, Other)
  Sender: FDA-Public Use
  Company Number: FR-JAZZ-2019-FR-014797

PATIENT
  Sex: Male
  Weight: 81 kg

DRUGS (2)
  1. DEFITELIO [Suspect]
     Active Substance: DEFIBROTIDE SODIUM
     Indication: PROPHYLAXIS
     Dosage: UNK
  2. DEFITELIO [Suspect]
     Active Substance: DEFIBROTIDE SODIUM
     Indication: VENOOCCLUSIVE DISEASE
     Dosage: 25 MILLIGRAM/KILOGRAM, QD
     Route: 042
     Dates: start: 20141105

REACTIONS (6)
  - Bone marrow transplant rejection [Fatal]
  - Renal failure [Unknown]
  - Off label use [Unknown]
  - Hypoglycaemic coma [Fatal]
  - Infection [Unknown]
  - Venoocclusive disease [Fatal]

NARRATIVE: CASE EVENT DATE: 20141105
